FAERS Safety Report 9144566 (Version 2)
Quarter: 2013Q1

REPORT INFORMATION
  Report Type: Spontaneous
  Country: JP (occurrence: JP)
  Receive Date: 20130306
  Receipt Date: 20130319
  Transmission Date: 20140127
  Serious: Yes (Other)
  Sender: FDA-Public Use
  Company Number: JP-ROCHE-1197105

PATIENT
  Age: 74 Year
  Sex: Male

DRUGS (9)
  1. TAMIFLU [Suspect]
     Indication: INFLUENZA
     Route: 048
     Dates: start: 20130202, end: 20130206
  2. AMLODIN [Concomitant]
     Dosage: DOSAGE IS UNCERTAIN.
     Route: 048
  3. LIPOVAS [Concomitant]
     Dosage: DOSAGE IS UNCERTAIN.
     Route: 048
  4. ZYLORIC [Concomitant]
     Dosage: DOSAGE IS UNCERTAIN.
     Route: 048
  5. OMEPRAZOLE [Concomitant]
     Dosage: DOSAGE IS UNCERTAIN.
     Route: 065
  6. DEPAS [Concomitant]
     Dosage: DOSAGE IS UNCERTAIN.
     Route: 048
  7. TRANSAMIN [Concomitant]
     Dosage: DOSAGE IS UNCERTAIN.
     Route: 048
     Dates: start: 20130202
  8. CELTECT [Concomitant]
     Dosage: DOSAGE IS UNCERTAIN.
     Route: 048
     Dates: start: 20130202
  9. FLAVERIC [Concomitant]
     Dosage: DOSAGE IS UNCERTAIN.
     Route: 048
     Dates: start: 20130202

REACTIONS (4)
  - Rhabdomyolysis [Recovered/Resolved]
  - Fall [Unknown]
  - Decreased appetite [Unknown]
  - Oropharyngeal pain [Unknown]
